FAERS Safety Report 12799118 (Version 1)
Quarter: 2016Q3

REPORT INFORMATION
  Report Type: Spontaneous
  Country: US (occurrence: US)
  Receive Date: 20160930
  Receipt Date: 20160930
  Transmission Date: 20161109
  Serious: Yes (Other)
  Sender: FDA-Public Use
  Company Number: US-SA-2016SA175837

PATIENT
  Age: 53 Year
  Sex: Female

DRUGS (1)
  1. AUBAGIO [Suspect]
     Active Substance: TERIFLUNOMIDE
     Indication: MULTIPLE SCLEROSIS
     Route: 065
     Dates: end: 201608

REACTIONS (7)
  - Fatigue [Unknown]
  - Pain [Unknown]
  - Fall [Unknown]
  - Bladder disorder [Unknown]
  - Sinusitis [Unknown]
  - Nausea [Unknown]
  - White blood cell count decreased [Unknown]
